FAERS Safety Report 6110336-4 (Version None)
Quarter: 2009Q1

REPORT INFORMATION
  Report Type: 
  Country: None (occurrence: None)
  Receive Date: 20090310
  Receipt Date: 20090226
  Transmission Date: 20090719
  Serious: Yes (Other)
  Sender: FDA-Public Use
  Company Number: JP-PFIZER INC-2009177097

PATIENT

DRUGS (1)
  1. VFEND [Suspect]
     Dosage: UNK
     Route: 048

REACTIONS (3)
  - DEMENTIA [None]
  - HEPATIC ENCEPHALOPATHY [None]
  - SPEECH DISORDER [None]
